FAERS Safety Report 7081050-6 (Version None)
Quarter: 2010Q4

REPORT INFORMATION
  Report Type: 
  Country: None (occurrence: None)
  Receive Date: 20101103
  Receipt Date: 20101102
  Transmission Date: 20110411
  Serious: Yes (Life-Threatening)
  Sender: FDA-Public Use
  Company Number: DE-ROCHE-725899

PATIENT
  Sex: Male
  Weight: 63 kg

DRUGS (7)
  1. AVASTIN [Suspect]
     Route: 042
     Dates: start: 20100830, end: 20100830
  2. OXALIPLATIN [Suspect]
     Route: 065
  3. FLUOROURACIL [Suspect]
     Route: 065
  4. ALOXI [Concomitant]
     Indication: PROPHYLAXIS
     Route: 042
     Dates: start: 20100816
  5. FENISTIL [Concomitant]
     Indication: PROPHYLAXIS
     Route: 042
     Dates: start: 20100816
  6. DEXAMETHASONE [Concomitant]
     Route: 042
     Dates: start: 20100816
  7. MCP [Concomitant]
     Indication: PROPHYLAXIS
     Route: 048
     Dates: start: 20100816

REACTIONS (3)
  - CARDIAC ARREST [None]
  - CHEST PAIN [None]
  - CORONARY ARTERY STENOSIS [None]
